FAERS Safety Report 4436298-3 (Version None)
Quarter: 2004Q3

REPORT INFORMATION
  Report Type: 
  Country: None (occurrence: None)
  Receive Date: 20040830
  Receipt Date: 20040716
  Transmission Date: 20050211
  Serious: No
  Sender: FDA-Public Use
  Company Number: US-BRISTOL-MYERS SQUIBB COMPANY-12644506

PATIENT

DRUGS (2)
  1. ERBITUX [Suspect]
  2. CAMPTOSAR [Concomitant]

REACTIONS (1)
  - PYREXIA [None]
